FAERS Safety Report 8530358-3 (Version None)
Quarter: 2012Q3

REPORT INFORMATION
  Report Type: 
  Country: None (occurrence: None)
  Receive Date: 20120723
  Receipt Date: 20120705
  Transmission Date: 20120928
  Serious: Yes (Hospitalization)
  Sender: FDA-Public Use
  Company Number: FR-009507513-1207FRA000170

PATIENT

DRUGS (9)
  1. VIRAFERONPEG [Suspect]
     Indication: HEPATITIS C
     Dosage: 180 MICROGRAM, QW
     Dates: start: 20110706, end: 20120607
  2. OXAZEPAM [Concomitant]
     Indication: ANXIETY
     Dosage: 10 MG, QD
     Dates: start: 20110101
  3. ATARAX (ALPRAZOLAM) [Concomitant]
     Indication: ANXIETY
     Dosage: 50 MG, QD
     Dates: start: 20110101
  4. REBETOL [Suspect]
     Indication: HEPATITIS C
     Dosage: 200 MG, TID
     Dates: start: 20110706, end: 20120607
  5. ESCITALOPRAM [Concomitant]
     Indication: DEPRESSION
  6. KETOCONAZOLE [Concomitant]
     Indication: SKIN DISORDER
     Dosage: UNK
  7. VICTRELIS [Suspect]
     Indication: HEPATITIS C
     Dosage: 800 MG, TID
     Dates: start: 20110803, end: 20120607
  8. RABEPRAZOLE SODIUM [Concomitant]
     Indication: GASTROOESOPHAGEAL REFLUX DISEASE
     Dosage: 20 MG, QD
     Dates: start: 20110101
  9. ESCITALOPRAM [Concomitant]
     Indication: ANXIETY
     Dosage: 5 MG, QD
     Dates: start: 20110101

REACTIONS (1)
  - PLEURAL DISORDER [None]
